FAERS Safety Report 19027624 (Version 1)
Quarter: 2021Q1

REPORT INFORMATION
  Report Type: Spontaneous
  Country: US (occurrence: US)
  Receive Date: 20210319
  Receipt Date: 20210319
  Transmission Date: 20210420
  Serious: No
  Sender: FDA-Public Use
  Company Number: US-ORGANON-2010USA009278

PATIENT
  Sex: Female
  Weight: 90.7 kg

DRUGS (1)
  1. NEXPLANON [Suspect]
     Active Substance: ETONOGESTREL
     Dosage: 1 IMPLANT (68 MILLIGRAM), IN LEFT ARM
     Route: 059
     Dates: start: 20200416, end: 20201021

REACTIONS (2)
  - Implant site pain [Unknown]
  - Device breakage [Recovered/Resolved]

NARRATIVE: CASE EVENT DATE: 2020
